FAERS Safety Report 9548107 (Version 1)
Quarter: 2013Q3

REPORT INFORMATION
  Report Type: Spontaneous
  Country: GB (occurrence: GB)
  Receive Date: 20130924
  Receipt Date: 20130924
  Transmission Date: 20140515
  Serious: Yes (Hospitalization)
  Sender: FDA-Public Use
  Company Number: GB-SANOFI-AVENTIS-2013SA092081

PATIENT
  Age: 43 Year
  Sex: Female

DRUGS (4)
  1. LANTUS SOLOSTAR [Suspect]
     Indication: TYPE 1 DIABETES MELLITUS
     Dosage: DOSE:60 UNIT(S)
     Route: 058
  2. SERTRALINE [Concomitant]
     Dosage: EVERY MORNING.
  3. NOVORAPID [Concomitant]
     Indication: TYPE 1 DIABETES MELLITUS
     Dosage: 10 YEARS PRIOR TO REPORT. DOSE:26 UNIT(S)
     Route: 058
  4. SOLOSTAR [Concomitant]

REACTIONS (4)
  - Tremor [Recovering/Resolving]
  - Headache [Recovering/Resolving]
  - Hyperglycaemia [Recovering/Resolving]
  - Drug administration error [Unknown]
